FAERS Safety Report 4911837-4 (Version None)
Quarter: 2006Q1

REPORT INFORMATION
  Report Type: 
  Country: None (occurrence: None)
  Receive Date: 20060215
  Receipt Date: 20050906
  Transmission Date: 20060701
  Serious: Yes (Hospitalization)
  Sender: FDA-Public Use
  Company Number: HQWYE309208SEP05

PATIENT
  Sex: Male

DRUGS (30)
  1. ENBREL [Suspect]
     Indication: RHEUMATOID ARTHRITIS
     Route: 058
     Dates: start: 20050713, end: 20051002
  2. BUCILLAMINE [Suspect]
     Indication: RHEUMATOID ARTHRITIS
     Dosage: DOSE AND FREQUENCY NOT SPECIFIED
     Route: 048
     Dates: start: 20041130, end: 20050905
  3. ALENDRONATE SODIUM [Suspect]
     Indication: OSTEOPOROSIS
     Dosage: DOSE AND FREQUENCY NOT SPECIFIED
     Route: 048
     Dates: start: 20041101, end: 20050905
  4. LANSOPRAZOLE [Suspect]
     Route: 048
     Dates: end: 20050907
  5. SODIUM ALGINATE [Suspect]
     Dates: start: 20050201, end: 20050905
  6. ETODOLAC [Suspect]
     Dates: start: 20050225, end: 20050905
  7. VOGLIBOSE [Suspect]
     Dates: start: 20050324, end: 20050905
  8. SULFAMETHOXAZOLE + TRIMETHOPRIM [Suspect]
     Indication: DRUG USE FOR UNKNOWN INDICATION
     Dosage: DOSE AND FREQUENCY NOT SPECIFIED
     Dates: end: 20050901
  9. ISONIAZID [Suspect]
     Indication: ANTIBIOTIC PROPHYLAXIS
     Dosage: DOSE AND FREQUENCY NOT SPECIFIED
     Dates: start: 20041201, end: 20050901
  10. SUCRALFATE [Suspect]
     Dosage: DOSE AND FREQUENCY NOT SPECIFIED
     Dates: end: 20050905
  11. RABEPRAZOLE SODIUM [Suspect]
     Dates: start: 20050907
  12. FERROUS CITRATE [Suspect]
     Dates: end: 20050901
  13. PREDONINE [Concomitant]
     Dates: start: 20030501
  14. PREDONINE [Concomitant]
     Dates: start: 20040223
  15. INDOMETHACIN [Concomitant]
  16. DICLOFENAC SODIUM [Concomitant]
  17. CROTAMITON [Concomitant]
  18. CALCIPOTRIENE [Concomitant]
  19. HYDROXYZINE HYDROCHLORIDE [Concomitant]
  20. GENTAMICIN SULFATE [Concomitant]
  21. MELOXICAM [Concomitant]
  22. AZELASTINE [Concomitant]
  23. DIPHENHYDRAMINE [Concomitant]
  24. REBAMIPIDE [Concomitant]
  25. OLOPATADINE [Concomitant]
  26. DEXCHLORPHENIRAMINE MALEATE [Concomitant]
  27. LOXOPROFEN SODIUM [Concomitant]
  28. TACALCITOL [Concomitant]
  29. NIFENAZONE [Concomitant]
  30. DIFLUPREDNATE [Concomitant]

REACTIONS (3)
  - ERYTHEMA MULTIFORME [None]
  - LYMPHOCYTE STIMULATION TEST POSITIVE [None]
  - PYREXIA [None]
